FAERS Safety Report 9729449 (Version 2)
Quarter: 2015Q3

REPORT INFORMATION
  Report Type: Spontaneous
  Country: US (occurrence: US)
  Receive Date: 20131204
  Receipt Date: 20150804
  Transmission Date: 20151125
  Serious: No
  Sender: FDA-Public Use
  Company Number: US-GILEAD-2009-0021392

PATIENT
  Age: 65 Year
  Sex: Male
  Weight: 91.58 kg

DRUGS (14)
  1. LETAIRIS [Suspect]
     Active Substance: AMBRISENTAN
     Indication: PULMONARY ARTERIAL HYPERTENSION
     Route: 048
     Dates: start: 20071017
  2. VIAGRA [Concomitant]
     Active Substance: SILDENAFIL CITRATE
  3. DIGOXIN. [Concomitant]
     Active Substance: DIGOXIN
  4. COLCHICINE. [Concomitant]
     Active Substance: COLCHICINE
  5. HERBAL MEDS [Concomitant]
  6. DIOVAN [Concomitant]
     Active Substance: VALSARTAN
  7. ANZEMET [Concomitant]
     Active Substance: DOLASETRON MESYLATE
  8. COMBIVENT [Concomitant]
     Active Substance: ALBUTEROL SULFATE\IPRATROPIUM BROMIDE
  9. ADVAIR HFA [Concomitant]
     Active Substance: FLUTICASONE PROPIONATE\SALMETEROL XINAFOATE
  10. METOPROLOL [Concomitant]
     Active Substance: METOPROLOL
  11. ALDACTONE [Concomitant]
     Active Substance: SPIRONOLACTONE
  12. BENADRYL [Concomitant]
     Active Substance: DIPHENHYDRAMINE HYDROCHLORIDE
  13. REVATIO [Concomitant]
     Active Substance: SILDENAFIL CITRATE
  14. ALLOPURINOL. [Concomitant]
     Active Substance: ALLOPURINOL

REACTIONS (1)
  - Musculoskeletal pain [Recovering/Resolving]
